FAERS Safety Report 4906924-0 (Version None)
Quarter: 2006Q1

REPORT INFORMATION
  Report Type: 
  Country: None (occurrence: None)
  Receive Date: 20060209
  Receipt Date: 20060125
  Transmission Date: 20060701
  Serious: Yes (Hospitalization)
  Sender: FDA-Public Use
  Company Number: FR-BOEHRINGER INGELHEIM PHARMACEUTICALS, INC.-2006-FF-00053FF

PATIENT
  Age: 60 Year
  Sex: Male

DRUGS (8)
  1. CATAPRES [Suspect]
     Route: 048
     Dates: start: 20051123, end: 20051127
  2. CATAPRES [Suspect]
     Route: 048
     Dates: start: 20051128, end: 20051214
  3. IMUREL [Concomitant]
     Route: 048
     Dates: start: 19960615, end: 20051221
  4. CORTANCYL [Concomitant]
     Route: 048
  5. CYCLOSPORINE [Concomitant]
  6. SECTRAL [Concomitant]
  7. EUPRESSYL [Concomitant]
     Dates: end: 20051101
  8. HYPERIUM [Concomitant]
     Dates: start: 20051115, end: 20051122

REACTIONS (4)
  - COUGH [None]
  - DYSPNOEA [None]
  - EOSINOPHILIC PNEUMONIA [None]
  - URTICARIA [None]
